FAERS Safety Report 6668858-3 (Version None)
Quarter: 2010Q2

REPORT INFORMATION
  Report Type: 
  Country: None (occurrence: None)
  Receive Date: 20100402
  Receipt Date: 20100323
  Transmission Date: 20101027
  Serious: Yes (Other)
  Sender: FDA-Public Use
  Company Number: 1-21857286

PATIENT
  Age: 16 Year
  Sex: Female
  Weight: 86.1834 kg

DRUGS (1)
  1. SOLODYN [Suspect]
     Indication: ACNE
     Dosage: 135 MG ONCE DAILY, ORAL
     Route: 048
     Dates: start: 20080701, end: 20100228

REACTIONS (9)
  - BLOOD CHOLESTEROL INCREASED [None]
  - BLOOD TRIGLYCERIDES INCREASED [None]
  - ENDOMETRIOSIS [None]
  - HEPATIC STEATOSIS [None]
  - HEPATOMEGALY [None]
  - INSULIN RESISTANCE [None]
  - LABORATORY TEST INTERFERENCE [None]
  - MENORRHAGIA [None]
  - POLYCYSTIC OVARIES [None]
